FAERS Safety Report 10621752 (Version 1)
Quarter: 2014Q4

REPORT INFORMATION
  Report Type: Spontaneous
  Country: US (occurrence: US)
  Receive Date: 20141203
  Receipt Date: 20141203
  Transmission Date: 20150529
  Serious: No
  Sender: FDA-Public Use
  Company Number: US-PFIZER INC-2014327648

PATIENT
  Age: 68 Year
  Sex: Female
  Weight: 100 kg

DRUGS (2)
  1. COUMADIN [Concomitant]
     Active Substance: WARFARIN SODIUM
     Indication: CARDIAC DISORDER
     Dosage: UNK
  2. VERAPAMIL HCL [Suspect]
     Active Substance: VERAPAMIL HYDROCHLORIDE
     Indication: HYPERTENSION
     Dosage: UNK

REACTIONS (8)
  - Vomiting [Unknown]
  - Hypersensitivity [Unknown]
  - Blister [Unknown]
  - Oral herpes [Unknown]
  - Rash maculo-papular [Unknown]
  - Dry skin [Not Recovered/Not Resolved]
  - Cardiac disorder [Unknown]
  - Nausea [Unknown]
